FAERS Safety Report 6174559-0 (Version None)
Quarter: 2009Q2

REPORT INFORMATION
  Report Type: 
  Country: None (occurrence: None)
  Receive Date: 20090430
  Receipt Date: 20081124
  Transmission Date: 20091009
  Serious: No
  Sender: FDA-Public Use
  Company Number: US-ASTRAZENECA-2008UW15262

PATIENT
  Age: 80 Year
  Sex: Male
  Weight: 78.5 kg

DRUGS (2)
  1. NEXIUM [Suspect]
     Indication: GASTROOESOPHAGEAL REFLUX DISEASE
     Route: 048
     Dates: start: 20080201
  2. NAUSEA MEDICATION [Concomitant]
     Dosage: AS NEEDED

REACTIONS (4)
  - ANXIETY [None]
  - DYSPHONIA [None]
  - INSOMNIA [None]
  - POLLAKIURIA [None]
